FAERS Safety Report 22081924 (Version 3)
Quarter: 2024Q3

REPORT INFORMATION
  Report Type: Spontaneous
  Country: US (occurrence: US)
  Receive Date: 20230310
  Receipt Date: 20240709
  Transmission Date: 20241016
  Serious: Yes (Death, Other)
  Sender: GLAXOSMITHKLINE
  Company Number: US-GSK-US2023033899

PATIENT

DRUGS (1)
  1. ANORO ELLIPTA [Suspect]
     Active Substance: UMECLIDINIUM BROMIDE\VILANTEROL TRIFENATATE
     Indication: Chronic obstructive pulmonary disease
     Dosage: 1 DF, QD
     Route: 048
     Dates: start: 2019, end: 20240610

REACTIONS (6)
  - Cardiac failure congestive [Fatal]
  - Atrial fibrillation [Fatal]
  - Coronary artery disease [Fatal]
  - Hypertension [Fatal]
  - Dyspnoea [Not Recovered/Not Resolved]
  - Wheezing [Not Recovered/Not Resolved]
